FAERS Safety Report 21681707 (Version 1)
Quarter: 2022Q4

REPORT INFORMATION
  Report Type: Other
  Country: CN (occurrence: CN)
  Receive Date: 20221205
  Receipt Date: 20221205
  Transmission Date: 20230113
  Serious: Yes (Hospitalization)
  Sender: FDA-Public Use
  Company Number: CN-GE HEALTHCARE-2022CSU008763

PATIENT
  Age: 81 Year
  Sex: Female
  Weight: 45 kg

DRUGS (4)
  1. VISIPAQUE [Suspect]
     Active Substance: IODIXANOL
     Indication: Computerised tomogram
     Dosage: 5 ML, SINGLE
     Route: 042
     Dates: start: 20221117, end: 20221118
  2. VISIPAQUE [Suspect]
     Active Substance: IODIXANOL
     Indication: Gastric cancer
  3. VISIPAQUE [Suspect]
     Active Substance: IODIXANOL
     Indication: Cervix neoplasm
  4. VISIPAQUE [Suspect]
     Active Substance: IODIXANOL
     Indication: Metastases to peritoneum

REACTIONS (1)
  - Dermatitis bullous [Recovering/Resolving]

NARRATIVE: CASE EVENT DATE: 20221118
